FAERS Safety Report 9359716 (Version 1)
Quarter: 2013Q2

REPORT INFORMATION
  Report Type: Spontaneous
  Country: FR (occurrence: FR)
  Receive Date: 20130621
  Receipt Date: 20130621
  Transmission Date: 20140414
  Serious: Yes (Other)
  Sender: FDA-Public Use
  Company Number: FR-ABBOTT-13X-056-1107814-00

PATIENT
  Sex: 0

DRUGS (2)
  1. VALPROATE SODIUM [Suspect]
     Indication: MATERNAL EXPOSURE TIMING UNSPECIFIED
     Route: 064
  2. LEVETIRACETAM [Suspect]
     Indication: MATERNAL EXPOSURE TIMING UNSPECIFIED
     Route: 064

REACTIONS (3)
  - Hypoglycaemia [Unknown]
  - Hypotonia [Unknown]
  - Foetal exposure during pregnancy [Unknown]
